FAERS Safety Report 8926992 (Version 1)
Quarter: 2012Q4

REPORT INFORMATION
  Report Type: 
  Country: US (occurrence: US)
  Receive Date: 20121127
  Receipt Date: 20121127
  Transmission Date: 20130627
  Serious: Yes (Other)
  Sender: FDA-Public Use
  Company Number: US-PFIZER INC-2012293378

PATIENT
  Age: 65 Year
  Sex: Female
  Weight: 50.79 kg

DRUGS (2)
  1. PREMARIN [Suspect]
     Indication: HORMONE REPLACEMENT THERAPY
     Dosage: 0.3 mg, 1x/day
     Route: 048
  2. LEVOTHROID [Concomitant]
     Dosage: 75 ug, UNK

REACTIONS (1)
  - Osteoporosis [Unknown]
